FAERS Safety Report 7020062-5 (Version None)
Quarter: 2010Q3

REPORT INFORMATION
  Report Type: 
  Country: None (occurrence: None)
  Receive Date: 20100929
  Receipt Date: 20100920
  Transmission Date: 20110219
  Serious: Yes (Hospitalization)
  Sender: FDA-Public Use
  Company Number: AU-ASTRAZENECA-2010SE44774

PATIENT
  Age: 48 Year
  Sex: Male
  Weight: 95 kg

DRUGS (7)
  1. MEROPENEM [Suspect]
     Route: 042
     Dates: start: 20100502
  2. ACETAMINOPHEN [Suspect]
     Dates: start: 20100502
  3. CRESTOR [Suspect]
     Route: 048
  4. ERYTHROMYCIN [Suspect]
     Dates: start: 20100502
  5. FENOFIBRATE [Suspect]
     Indication: XANTHOMATOSIS
  6. NILSTAT [Suspect]
     Dates: start: 20100502
  7. PANTOPRAZOLE [Suspect]
     Dates: start: 20100502

REACTIONS (5)
  - BLOOD CREATINE PHOSPHOKINASE INCREASED [None]
  - HYPERTRIGLYCERIDAEMIA [None]
  - RENAL FAILURE [None]
  - RHABDOMYOLYSIS [None]
  - SEPSIS [None]
